FAERS Safety Report 22352023 (Version 1)
Quarter: 2023Q2

REPORT INFORMATION
  Report Type: Spontaneous
  Country: US (occurrence: None)
  Receive Date: 20230522
  Receipt Date: 20230522
  Transmission Date: 20230721
  Serious: No
  Sender: FDA-Public Use
  Company Number: None

PATIENT
  Sex: Female

DRUGS (1)
  1. STELARA [Suspect]
     Active Substance: USTEKINUMAB
     Indication: Crohn^s disease
     Dosage: OTHER QUANTITY : 90MG/1ML;?OTHER FREQUENCY : EVERY 8 WEEKS;?
     Route: 058
     Dates: start: 20230124

REACTIONS (3)
  - Drug ineffective [None]
  - Pain [None]
  - Constipation [None]
